FAERS Safety Report 4482588-8 (Version None)
Quarter: 2004Q4

REPORT INFORMATION
  Report Type: 
  Country: None (occurrence: None)
  Receive Date: 20041022
  Receipt Date: 20030908
  Transmission Date: 20050328
  Serious: Yes (Other)
  Sender: FDA-Public Use
  Company Number: BE-JNJFOC-20030600096

PATIENT
  Age: 62 Year
  Sex: Female

DRUGS (1)
  1. PROPULSID [Suspect]
     Dates: start: 19950101

REACTIONS (1)
  - POLYMYOSITIS [None]
